FAERS Safety Report 24383432 (Version 1)
Quarter: 2024Q3

REPORT INFORMATION
  Report Type: Spontaneous
  Country: US (occurrence: None)
  Receive Date: 20240930
  Receipt Date: 20240930
  Transmission Date: 20241016
  Serious: Yes (Hospitalization)
  Sender: Public
  Company Number: None

PATIENT
  Age: 38 Year
  Sex: Male
  Weight: 75.4 kg

DRUGS (1)
  1. ELFABRIO [Suspect]
     Active Substance: PEGUNIGALSIDASE ALFA-IWXJ
     Indication: Fabry^s disease
     Dosage: OTHER FREQUENCY : EVERY OTHER WEEK;?
     Route: 042
     Dates: start: 20240909

REACTIONS (3)
  - Arthralgia [None]
  - Mobility decreased [None]
  - Chills [None]

NARRATIVE: CASE EVENT DATE: 20240924
